FAERS Safety Report 7304975-2 (Version None)
Quarter: 2011Q1

REPORT INFORMATION
  Report Type: 
  Country: None (occurrence: None)
  Receive Date: 20110222
  Receipt Date: 20110217
  Transmission Date: 20110831
  Serious: Yes (Other)
  Sender: FDA-Public Use
  Company Number: JP-SANOFI-AVENTIS-2011SA010323

PATIENT

DRUGS (1)
  1. ALLEGRA [Suspect]
     Route: 048
     Dates: start: 20110210

REACTIONS (1)
  - ELECTROCARDIOGRAM QT PROLONGED [None]
